FAERS Safety Report 5809771-0 (Version None)
Quarter: 2008Q3

REPORT INFORMATION
  Report Type: 
  Country: None (occurrence: None)
  Receive Date: 20080715
  Receipt Date: 20080710
  Transmission Date: 20090109
  Serious: Yes (Hospitalization)
  Sender: FDA-Public Use
  Company Number: HR-AVENTIS-200811883GDDC

PATIENT
  Age: 36 Year
  Sex: Female
  Weight: 77 kg

DRUGS (8)
  1. INSULIN GLARGINE [Suspect]
     Indication: DIABETES MELLITUS
     Route: 058
     Dates: start: 20070830
  2. INSULIN LISPRO [Suspect]
     Indication: DIABETES MELLITUS
     Route: 058
     Dates: start: 20070802
  3. INSULIN LISPRO [Suspect]
     Route: 058
     Dates: start: 20070802
  4. AUTOPEN INSULIN INJECTION PEN [Suspect]
     Route: 058
  5. TRANDOLAPRIL [Concomitant]
     Dates: start: 20040804
  6. ETHYLESTRENOL [Concomitant]
     Dates: start: 20070903
  7. VITAMINS NOS [Concomitant]
  8. LISPRO [Concomitant]
     Route: 058
     Dates: start: 20070802

REACTIONS (3)
  - DIABETES MELLITUS INADEQUATE CONTROL [None]
  - DIABETIC COMPLICATION [None]
  - DRUG INEFFECTIVE [None]
